FAERS Safety Report 16674331 (Version 1)
Quarter: 2019Q3

REPORT INFORMATION
  Report Type: Spontaneous
  Country: US (occurrence: US)
  Receive Date: 20190806
  Receipt Date: 20190806
  Transmission Date: 20191004
  Serious: No
  Sender: FDA-Public Use
  Company Number: US-TAKEDA-2019TUS046766

PATIENT
  Sex: Female
  Weight: 58.05 kg

DRUGS (1)
  1. ENTYVIO [Suspect]
     Active Substance: VEDOLIZUMAB
     Indication: CROHN^S DISEASE
     Dosage: 300 MILLIGRAM
     Route: 042
     Dates: start: 20190531, end: 20190712

REACTIONS (4)
  - Bronchitis [Unknown]
  - Anal fissure [Unknown]
  - Mastitis [Unknown]
  - Abdominal pain [Unknown]
